FAERS Safety Report 7559564-1 (Version None)
Quarter: 2011Q2

REPORT INFORMATION
  Report Type: 
  Country: None (occurrence: None)
  Receive Date: 20110613
  Receipt Date: 20110527
  Transmission Date: 20111010
  Serious: Yes (Hospitalization)
  Sender: FDA-Public Use
  Company Number: TPA2011A02737

PATIENT
  Age: 64 Year
  Sex: Female
  Weight: 190 kg

DRUGS (2)
  1. ACTOS [Suspect]
     Indication: TYPE 2 DIABETES MELLITUS
     Dosage: 15 MG, 1 IN 1 D, PER ORAL
     Route: 048
  2. ACETAMINOPHEN [Concomitant]

REACTIONS (6)
  - DYSPNOEA [None]
  - VOMITING [None]
  - HEART RATE DECREASED [None]
  - BLOOD POTASSIUM DECREASED [None]
  - NAUSEA [None]
  - SINUSITIS [None]
